FAERS Safety Report 18994582 (Version 1)
Quarter: 2021Q1

REPORT INFORMATION
  Report Type: Spontaneous
  Country: US (occurrence: US)
  Receive Date: 20210310
  Receipt Date: 20210310
  Transmission Date: 20210420
  Serious: No
  Sender: FDA-Public Use
  Company Number: US-ORGANON-O2103USA001032

PATIENT

DRUGS (3)
  1. FOLLISTIM AQ [Suspect]
     Active Substance: FOLLITROPIN
     Dosage: ONE INJECTION
  2. FOLLISTIM AQ [Suspect]
     Active Substance: FOLLITROPIN
  3. PUREGON PEN [Suspect]

REACTIONS (1)
  - Device dispensing error [Unknown]

NARRATIVE: CASE EVENT DATE: 20210305
